FAERS Safety Report 15426622 (Version 2)
Quarter: 2018Q4

REPORT INFORMATION
  Report Type: Spontaneous
  Country: US (occurrence: US)
  Receive Date: 20180925
  Receipt Date: 20181010
  Transmission Date: 20190204
  Serious: Yes (Other)
  Sender: FDA-Public Use
  Company Number: US-SA-2018SA261758

PATIENT
  Age: 80 Year
  Sex: Female

DRUGS (1)
  1. LANTUS SOLOSTAR [Suspect]
     Active Substance: INSULIN GLARGINE
     Indication: DIABETES MELLITUS
     Dosage: 17 U, QD
     Route: 065

REACTIONS (8)
  - Movement disorder [Unknown]
  - Bladder disorder [Unknown]
  - Blood glucose increased [Unknown]
  - Myocardial infarction [Unknown]
  - Loss of consciousness [Unknown]
  - Device issue [Unknown]
  - Visual impairment [Unknown]
  - Product dose omission [Unknown]

NARRATIVE: CASE EVENT DATE: 201712
